FAERS Safety Report 9202072 (Version 2)
Quarter: 2013Q2

REPORT INFORMATION
  Report Type: Spontaneous
  Country: US (occurrence: US)
  Receive Date: 20130401
  Receipt Date: 20130509
  Transmission Date: 20140414
  Serious: Yes (Other)
  Sender: FDA-Public Use
  Company Number: US-ASTRAZENECA-2013SE18950

PATIENT
  Age: 57 Year
  Sex: Female
  Weight: 68.9 kg

DRUGS (5)
  1. SYMBICORT [Suspect]
     Indication: ASTHMA
     Dosage: 160/4.5, 2 PUFFS BID
     Route: 055
     Dates: start: 20130225
  2. GABAPENTIN [Concomitant]
  3. PREDNISONE [Concomitant]
  4. AMLODIPINE [Concomitant]
  5. BACLOFEN [Concomitant]

REACTIONS (3)
  - Loss of consciousness [Unknown]
  - Fall [Unknown]
  - Pain [Unknown]
